FAERS Safety Report 17760637 (Version 1)
Quarter: 2020Q2

REPORT INFORMATION
  Report Type: Spontaneous
  Country: US (occurrence: US)
  Receive Date: 20200508
  Receipt Date: 20200508
  Transmission Date: 20200714
  Serious: No
  Sender: FDA-Public Use
  Company Number: None

PATIENT
  Age: 6 Year
  Weight: 22.5 kg

DRUGS (4)
  1. ZYRTEC [Concomitant]
     Active Substance: CETIRIZINE HYDROCHLORIDE
  2. FLINTSINES MULTIVITAMIN [Concomitant]
  3. COPPERTONE WATERBABIES PURE AND SIMPLE MINERAL SPF 50 [Suspect]
     Active Substance: OCTINOXATE\OCTISALATE\ZINC OXIDE
     Indication: PROPHYLAXIS AGAINST SOLAR RADIATION
     Route: 061
     Dates: start: 20200328, end: 20200328
  4. OMEPRAZOLE. [Concomitant]
     Active Substance: OMEPRAZOLE

REACTIONS (1)
  - Dermatitis contact [None]

NARRATIVE: CASE EVENT DATE: 20200329
